FAERS Safety Report 21019184 (Version 1)
Quarter: 2022Q2

REPORT INFORMATION
  Report Type: Spontaneous
  Country: CN (occurrence: CN)
  Receive Date: 20220628
  Receipt Date: 20220628
  Transmission Date: 20220721
  Serious: Yes (Other)
  Sender: FDA-Public Use
  Company Number: CN-PFIZER INC-PV202200009469

PATIENT
  Age: 13 Year
  Sex: Female

DRUGS (3)
  1. AZITHROMYCIN [Suspect]
     Active Substance: AZITHROMYCIN
     Indication: Pneumonia
     Dosage: 250 MG, 1X/DAY
     Route: 048
     Dates: start: 20220621, end: 20220622
  2. AZITHROMYCIN [Suspect]
     Active Substance: AZITHROMYCIN
     Indication: Bronchitis
  3. COMPOUND PHOLCODINE [EPHEDRINE HYDROCHLORIDE;GUAIFENESIN;PHOLCODINE] [Concomitant]
     Indication: Cough
     Dosage: 10 ML, 3X/DAY
     Route: 048
     Dates: start: 20220621, end: 20220621

REACTIONS (3)
  - Erythema [Recovering/Resolving]
  - Rash pruritic [Recovering/Resolving]
  - Off label use [Unknown]

NARRATIVE: CASE EVENT DATE: 20220621
